FAERS Safety Report 5106066-8 (Version None)
Quarter: 2006Q3

REPORT INFORMATION
  Report Type: 
  Country: None (occurrence: None)
  Receive Date: 20060912
  Receipt Date: 20060830
  Transmission Date: 20061208
  Serious: Yes (Hospitalization)
  Sender: FDA-Public Use
  Company Number: 2006107044

PATIENT
  Age: 52 Year
  Sex: Male
  Weight: 129.2752 kg

DRUGS (1)
  1. BEXTRA [Suspect]
     Indication: ARTHRALGIA

REACTIONS (1)
  - ARTERIAL OCCLUSIVE DISEASE [None]
